FAERS Safety Report 5679854-7 (Version None)
Quarter: 2008Q1

REPORT INFORMATION
  Report Type: 
  Country: None (occurrence: None)
  Receive Date: 20080324
  Receipt Date: 20080314
  Transmission Date: 20080703
  Serious: Yes (Life-Threatening, Hospitalization)
  Sender: FDA-Public Use
  Company Number: 2008SP005349

PATIENT
  Age: 65 Year
  Sex: Male

DRUGS (5)
  1. CELESTONE [Suspect]
     Indication: PREMEDICATION
     Dosage: ; ONCE; IV
     Route: 042
     Dates: start: 20071218, end: 20071218
  2. DIPRIVAN [Suspect]
     Indication: ANAESTHESIA
     Dosage: 280 MG; ONCE; IV
     Route: 042
     Dates: start: 20071218, end: 20071218
  3. SUFENTANIL (SUFENTANIL) [Suspect]
     Indication: ANAESTHESIA
     Dosage: ; ONCE; IV
     Route: 042
     Dates: start: 20071218, end: 20071218
  4. TRACRIUM [Suspect]
     Indication: ANAESTHESIA
     Dosage: 30 MG; ONCE; IV
     Route: 042
     Dates: start: 20071218, end: 20071218
  5. ATROPINE [Suspect]
     Indication: ANAESTHESIA
     Dosage: ; ONCE; IV
     Route: 042
     Dates: start: 20071218, end: 20071218

REACTIONS (4)
  - ACUTE RESPIRATORY DISTRESS SYNDROME [None]
  - CIRCULATORY COLLAPSE [None]
  - HYPOXIA [None]
  - PROCEDURAL HYPOTENSION [None]
